FAERS Safety Report 21872536 (Version 1)
Quarter: 2023Q1

REPORT INFORMATION
  Report Type: Spontaneous
  Country: US (occurrence: None)
  Receive Date: 20230114
  Receipt Date: 20230114
  Transmission Date: 20230417
  Serious: No
  Sender: FDA-Public Use
  Company Number: None

PATIENT
  Age: 70 Year
  Sex: Male
  Weight: 69.31 kg

DRUGS (14)
  1. INLYTA [Suspect]
     Active Substance: AXITINIB
     Indication: Renal cancer
     Dosage: OTHER FREQUENCY : Q 12 HOUR;?
     Route: 048
     Dates: start: 20230104, end: 20230113
  2. ASPIRIN [Concomitant]
     Active Substance: ASPIRIN
  3. BRILINTA [Concomitant]
     Active Substance: TICAGRELOR
  4. COREG [Concomitant]
     Active Substance: CARVEDILOL
  5. DRONABINOL [Concomitant]
     Active Substance: DRONABINOL
  6. FENTANYL [Concomitant]
     Active Substance: FENTANYL
  7. LEVOTHYROXINE SODIUM [Concomitant]
     Active Substance: LEVOTHYROXINE SODIUM
  8. MAGNESIUM [Concomitant]
     Active Substance: MAGNESIUM
  9. MIRTAZAPINE [Concomitant]
     Active Substance: MIRTAZAPINE
  10. ACETAMINOPHEN\OXYCODONE HYDROCHLORIDE [Concomitant]
     Active Substance: ACETAMINOPHEN\OXYCODONE HYDROCHLORIDE
  11. ROSUVASTATIN [Concomitant]
     Active Substance: ROSUVASTATIN
  12. VITAMIN B12 [Concomitant]
     Active Substance: CYANOCOBALAMIN
  13. VITAMIN D [Concomitant]
     Active Substance: VITAMIN D NOS
  14. ZETIA [Concomitant]
     Active Substance: EZETIMIBE

REACTIONS (1)
  - Hospice care [None]
